FAERS Safety Report 8404645-3 (Version None)
Quarter: 2012Q2

REPORT INFORMATION
  Report Type: 
  Country: None (occurrence: None)
  Receive Date: 20120601
  Receipt Date: 20120525
  Transmission Date: 20120825
  Serious: Yes (Other)
  Sender: FDA-Public Use
  Company Number: US-GILEAD-2012-0055693

PATIENT
  Age: 32 Year
  Sex: Female

DRUGS (3)
  1. ACETAMINOPHEN [Concomitant]
     Indication: PRODUCT USED FOR UNKNOWN INDICATION
     Dosage: UNK
     Dates: start: 20110829, end: 20110901
  2. EMTRICITABINE/TENOFOVIR DISOPROXIL FUMARATE [Suspect]
     Indication: PROPHYLAXIS AGAINST HIV INFECTION
     Dosage: UNK
     Dates: start: 20101122, end: 20110926
  3. ARTEMETHER W/LUMEFANTRINE [Concomitant]
     Indication: MALARIA
     Dosage: UNK
     Dates: start: 20110829, end: 20110901

REACTIONS (1)
  - ABORTION SPONTANEOUS [None]
